FAERS Safety Report 21255474 (Version 2)
Quarter: 2022Q4

REPORT INFORMATION
  Report Type: Spontaneous
  Country: TR (occurrence: TR)
  Receive Date: 20220825
  Receipt Date: 20221109
  Transmission Date: 20230112
  Serious: Yes (Hospitalization)
  Sender: FDA-Public Use
  Company Number: TR-TEVA-2022-TR-2067004

PATIENT
  Age: 26 Year
  Sex: Male

DRUGS (1)
  1. PREGABALIN [Suspect]
     Active Substance: PREGABALIN
     Indication: Drug abuse
     Dosage: 300 MILLIGRAM DAILY; 20 CAPSULES OF 300 MG/DAY
     Route: 065

REACTIONS (10)
  - Withdrawal syndrome [Unknown]
  - Insomnia [Unknown]
  - Psychomotor hyperactivity [Unknown]
  - Tremor [Unknown]
  - Irritability [Unknown]
  - Dyspepsia [Unknown]
  - Nervousness [Unknown]
  - Anxiety [Unknown]
  - Depressive symptom [Unknown]
  - Drug abuse [Unknown]
